FAERS Safety Report 9779402 (Version 1)
Quarter: 2013Q4

REPORT INFORMATION
  Report Type: Report from Study
  Country: JP (occurrence: JP)
  Receive Date: 20131223
  Receipt Date: 20131223
  Transmission Date: 20140711
  Serious: Yes (Disabling, Other)
  Sender: FDA-Public Use
  Company Number: JP-GILEAD-2013-0090104

PATIENT
  Age: 29 Year
  Sex: Male

DRUGS (8)
  1. TRUVADA [Suspect]
     Indication: HIV INFECTION
     Dosage: 1 DF, QD
     Route: 048
     Dates: start: 20120418, end: 20121026
  2. NORVIR [Suspect]
     Indication: HIV INFECTION
     Dosage: 100 MG, QD
     Route: 048
     Dates: start: 20120418, end: 20130117
  3. PREZISTANAIVE [Suspect]
     Indication: HIV INFECTION
     Dosage: 800 MG, QD
     Route: 048
     Dates: start: 20120418, end: 20130117
  4. ANCOTIL [Concomitant]
     Indication: MENINGITIS CRYPTOCOCCAL
     Dosage: 1500 MG, QID
     Route: 048
     Dates: start: 20121012, end: 20121123
  5. AMBISOME [Concomitant]
     Indication: MENINGITIS CRYPTOCOCCAL
     Dosage: 300 MG, QD
     Route: 041
     Dates: start: 20121012, end: 20121123
  6. EPZICOM [Concomitant]
     Indication: HIV INFECTION
     Dosage: 1 DF, QD
     Route: 048
     Dates: start: 20121027
  7. EDURANT [Concomitant]
     Indication: HIV INFECTION
     Dosage: 25 MG, QD
     Route: 048
     Dates: start: 20130118
  8. VFEND [Concomitant]
     Indication: MENINGITIS CRYPTOCOCCAL
     Dosage: 200 MG, BID
     Route: 048
     Dates: start: 20130118

REACTIONS (3)
  - Osteonecrosis [Not Recovered/Not Resolved]
  - Blood urea increased [Recovering/Resolving]
  - Blood creatinine increased [Recovering/Resolving]
